FAERS Safety Report 20636052 (Version 1)
Quarter: 2022Q1

REPORT INFORMATION
  Report Type: Spontaneous
  Country: BG (occurrence: BG)
  Receive Date: 20220325
  Receipt Date: 20220325
  Transmission Date: 20220423
  Serious: Yes (Hospitalization, Other)
  Sender: FDA-Public Use
  Company Number: None

PATIENT
  Age: 83 Year
  Sex: Male

DRUGS (5)
  1. HYDROCHLOROTHIAZIDE\IRBESARTAN [Suspect]
     Active Substance: HYDROCHLOROTHIAZIDE\IRBESARTAN
     Indication: Hypertension
     Dosage: 2 DOSAGE FORMS DAILY; IRBESARTAN HYDROCHLOROTHIAZIDE 150 MG/12.5 MG FILM-COATED TABLETS
     Dates: start: 20210610, end: 20211006
  2. PIRACETAM [Concomitant]
     Active Substance: PIRACETAM
     Dosage: PIRACETAM 2.4 G
  3. MOLSIDOMINE [Concomitant]
     Active Substance: MOLSIDOMINE
     Dosage: MOLSIDOMINE 2 MG
  4. VINPOCETINE [Concomitant]
     Active Substance: VINPOCETINE
     Dosage: VINPOCETINE 10 MG
  5. ROSUVASTATIN [Concomitant]
     Active Substance: ROSUVASTATIN
     Dosage: ROSUVASTATIN 20MG

REACTIONS (1)
  - Keratoacanthoma [Recovered/Resolved with Sequelae]

NARRATIVE: CASE EVENT DATE: 20210810
